FAERS Safety Report 6489603-0 (Version None)
Quarter: 2009Q4

REPORT INFORMATION
  Report Type: 
  Country: None (occurrence: None)
  Receive Date: 20091207
  Receipt Date: 20091123
  Transmission Date: 20100525
  Serious: Yes (Death, Hospitalization, Disabling)
  Sender: FDA-Public Use
  Company Number: 2009AC000322

PATIENT
  Age: 63 Year
  Sex: Male

DRUGS (28)
  1. DIGOXIN [Suspect]
     Dosage: 0.125 MG; QD; PO
     Route: 048
     Dates: start: 20080101
  2. FERROUS SULFATE TAB [Concomitant]
  3. ARICEPT [Concomitant]
  4. HUMULIN R [Concomitant]
  5. WARFARIN SODIUM [Concomitant]
  6. NAPROXEN [Concomitant]
  7. LORAZEPAM [Concomitant]
  8. SULFACETAMIDE SODIUM [Concomitant]
  9. PROPROXYPHENE-N [Concomitant]
  10. SKELAXIN [Concomitant]
  11. METOPROLOL TARTRATE [Concomitant]
  12. HYDROCODONE [Concomitant]
  13. LIPITOR [Concomitant]
  14. CIPROFLOXACIN [Concomitant]
  15. PROMETHAZINE [Concomitant]
  16. AMOXICILLIN [Concomitant]
  17. LIPITOR [Concomitant]
  18. FERROUR SULFATE [Concomitant]
  19. INSULIN [Concomitant]
  20. TOPROL-XL [Concomitant]
  21. COUMADIN [Concomitant]
  22. EPINEPHRINE [Concomitant]
  23. PRILOSEC [Concomitant]
  24. LOVENOX [Concomitant]
  25. NOVOLIN [Concomitant]
  26. HUMULIN INSULIN [Concomitant]
  27. METOPROLOL TARTRATE [Concomitant]
  28. ATIVAN [Concomitant]

REACTIONS (29)
  - ABNORMAL BEHAVIOUR [None]
  - AGITATION [None]
  - ANAEMIA [None]
  - ANHEDONIA [None]
  - ANXIETY [None]
  - ATRIAL FIBRILLATION [None]
  - BLINDNESS [None]
  - CARDIAC ARREST [None]
  - CONFUSIONAL STATE [None]
  - DEMENTIA [None]
  - DIARRHOEA [None]
  - DIZZINESS [None]
  - DYSPHAGIA [None]
  - DYSPNOEA [None]
  - ECONOMIC PROBLEM [None]
  - FALL [None]
  - FEMUR FRACTURE [None]
  - HALLUCINATION, AUDITORY [None]
  - HALLUCINATION, VISUAL [None]
  - INTERNATIONAL NORMALISED RATIO INCREASED [None]
  - MALNUTRITION [None]
  - MEMORY IMPAIRMENT [None]
  - MENTAL DISORDER [None]
  - MULTIPLE INJURIES [None]
  - OCCULT BLOOD POSITIVE [None]
  - PAIN [None]
  - SUPRAVENTRICULAR TACHYCARDIA [None]
  - VENTRICULAR FIBRILLATION [None]
  - VOMITING [None]
